FAERS Safety Report 17141770 (Version 1)
Quarter: 2019Q4

REPORT INFORMATION
  Report Type: Spontaneous
  Country: JP (occurrence: JP)
  Receive Date: 20191211
  Receipt Date: 20191211
  Transmission Date: 20200122
  Serious: Yes (Other)
  Sender: FDA-Public Use
  Company Number: JP-BRISTOL-MYERS SQUIBB COMPANY-BMS-2019-117551

PATIENT
  Sex: Male

DRUGS (1)
  1. ELIQUIS [Suspect]
     Active Substance: APIXABAN
     Indication: VARICOSE VEIN
     Dosage: UNK
     Route: 065

REACTIONS (3)
  - Fall [Unknown]
  - Extradural haematoma [Unknown]
  - Urethral haemorrhage [Unknown]
